FAERS Safety Report 4362489-6 (Version None)
Quarter: 2004Q2

REPORT INFORMATION
  Report Type: 
  Country: None (occurrence: None)
  Receive Date: 20040521
  Receipt Date: 20040413
  Transmission Date: 20050107
  Serious: Yes (Other)
  Sender: FDA-Public Use
  Company Number: PHBS2004CA05041

PATIENT
  Age: 34 Year
  Sex: Female

DRUGS (12)
  1. ZELNORM [Suspect]
     Indication: IRRITABLE BOWEL SYNDROME
     Dosage: 6 MG/DAY
     Route: 048
     Dates: start: 20010101, end: 20020101
  2. ZELNORM [Suspect]
     Dosage: 6 MG, BID
     Route: 048
     Dates: start: 20030601, end: 20040414
  3. ZELNORM [Suspect]
     Dosage: 6 MG/DAY
     Route: 048
     Dates: start: 20040415
  4. ZOLOFT [Concomitant]
     Dosage: 50 MG, QD
  5. CELEXA [Concomitant]
     Dosage: 20 MG, QD
     Dates: start: 20020101, end: 20030101
  6. FLEXERIL [Concomitant]
     Dosage: 5 MG, PRN
  7. IMOVANE [Concomitant]
     Dosage: 7.5 MG, UNK
  8. SURFAK [Concomitant]
     Dosage: 240 MG, BID
  9. ALOES [Concomitant]
  10. FLORABILE (SWISS) [Concomitant]
  11. EVENING PRIMROSE OIL [Concomitant]
  12. VIOXX [Concomitant]
     Dosage: 25 MG PRN

REACTIONS (7)
  - ERYTHEMA [None]
  - FEELING HOT [None]
  - FEELING HOT AND COLD [None]
  - FLUSHING [None]
  - HYPERHIDROSIS [None]
  - OEDEMA PERIPHERAL [None]
  - SWELLING FACE [None]
